FAERS Safety Report 10529087 (Version 1)
Quarter: 2014Q4

REPORT INFORMATION
  Report Type: Spontaneous
  Country: US (occurrence: US)
  Receive Date: 20141020
  Receipt Date: 20141020
  Transmission Date: 20150528
  Serious: Yes (Death, Hospitalization, Other)
  Sender: FDA-Public Use
  Company Number: US-B.I. PHARMACEUTICALS,INC./RIDGEFIELD-2014-BI-49884BP

PATIENT
  Age: 60 Year
  Sex: Male
  Weight: 70.31 kg

DRUGS (2)
  1. COUMADIN [Suspect]
     Active Substance: WARFARIN SODIUM
     Indication: PULMONARY EMBOLISM
     Route: 065
     Dates: start: 20110404
  2. PRADAXA [Suspect]
     Active Substance: DABIGATRAN ETEXILATE MESYLATE
     Indication: PULMONARY EMBOLISM
     Route: 065
     Dates: start: 20110405

REACTIONS (6)
  - Subdural haematoma [Fatal]
  - Gastrointestinal haemorrhage [Unknown]
  - Subarachnoid haemorrhage [Fatal]
  - Acute respiratory failure [Unknown]
  - Intraventricular haemorrhage [Fatal]
  - Coagulopathy [Recovered/Resolved]

NARRATIVE: CASE EVENT DATE: 201104
